FAERS Safety Report 24613033 (Version 1)
Quarter: 2024Q4

REPORT INFORMATION
  Report Type: Spontaneous
  Country: US (occurrence: None)
  Receive Date: 20241112
  Receipt Date: 20241112
  Transmission Date: 20250115
  Serious: Yes (Other)
  Sender: Public
  Company Number: None

PATIENT
  Sex: 0

DRUGS (1)
  1. BOTOX [Suspect]
     Active Substance: ONABOTULINUMTOXINA
     Indication: Migraine

REACTIONS (8)
  - Sensory disturbance [None]
  - Arthralgia [None]
  - Neck pain [None]
  - Temporomandibular pain and dysfunction syndrome [None]
  - Migraine [None]
  - Hypoaesthesia [None]
  - Hypoaesthesia [None]
  - Speech disorder [None]

NARRATIVE: CASE EVENT DATE: 20241008
